FAERS Safety Report 4621856-3 (Version None)
Quarter: 2005Q1

REPORT INFORMATION
  Report Type: 
  Country: None (occurrence: None)
  Receive Date: 20050329
  Receipt Date: 20050317
  Transmission Date: 20050727
  Serious: Yes (Life-Threatening, Hospitalization)
  Sender: FDA-Public Use
  Company Number: FR-BRISTOL-MYERS SQUIBB COMPANY-12903332

PATIENT
  Age: 62 Year
  Sex: Female

DRUGS (6)
  1. PRAVASTATIN [Suspect]
     Route: 048
     Dates: end: 20041231
  2. TERALITHE [Suspect]
     Indication: BIPOLAR I DISORDER
     Route: 048
     Dates: end: 20041230
  3. TERCIAN [Suspect]
     Route: 048
     Dates: start: 20041227, end: 20041231
  4. NICARDIPINE HCL [Suspect]
     Route: 048
     Dates: start: 20041227, end: 20041231
  5. TRANXENE [Suspect]
     Route: 048
     Dates: start: 20041227, end: 20041230
  6. LEVOTHYROX [Concomitant]
     Route: 048

REACTIONS (3)
  - HYPERCALCAEMIA [None]
  - HYPERPARATHYROIDISM [None]
  - NEPHROGENIC DIABETES INSIPIDUS [None]
